FAERS Safety Report 9509268 (Version 2)
Quarter: 2013Q4

REPORT INFORMATION
  Report Type: Spontaneous
  Country: PE (occurrence: PE)
  Receive Date: 20130909
  Receipt Date: 20131022
  Transmission Date: 20140711
  Serious: Yes (Hospitalization)
  Sender: FDA-Public Use
  Company Number: PE-ELI_LILLY_AND_COMPANY-PE201309001954

PATIENT
  Age: 71 Year
  Sex: Male

DRUGS (4)
  1. HUMULIN NPH [Suspect]
  2. OMEPRAZOLE [Concomitant]
     Dosage: UNK
  3. PROPANOLOL                         /00030001/ [Concomitant]
  4. LACTOSE [Concomitant]
     Indication: HEPATIC CIRRHOSIS

REACTIONS (4)
  - Fall [Recovered/Resolved]
  - Contusion [Not Recovered/Not Resolved]
  - Incorrect dose administered [Unknown]
  - Drug dose omission [Unknown]
